FAERS Safety Report 19069709 (Version 3)
Quarter: 2021Q2

REPORT INFORMATION
  Report Type: Spontaneous
  Country: VE (occurrence: VE)
  Receive Date: 20210329
  Receipt Date: 20210522
  Transmission Date: 20210717
  Serious: Yes (Other)
  Sender: FDA-Public Use
  Company Number: NVSC2021VE032639

PATIENT
  Sex: Male

DRUGS (2)
  1. GLIVEC [Suspect]
     Active Substance: IMATINIB MESYLATE
     Indication: CHRONIC MYELOID LEUKAEMIA
     Dosage: UNK
     Route: 065
  2. GLIVEC [Suspect]
     Active Substance: IMATINIB MESYLATE
     Dosage: 400 MG, QD (4 OF 100 MG)
     Route: 065

REACTIONS (13)
  - White blood cell count increased [Recovering/Resolving]
  - Bone pain [Unknown]
  - Vomiting [Unknown]
  - Musculoskeletal discomfort [Not Recovered/Not Resolved]
  - Haemoglobin decreased [Unknown]
  - Bronchitis [Unknown]
  - Eating disorder [Unknown]
  - Arthralgia [Unknown]
  - Discomfort [Unknown]
  - Pain [Unknown]
  - Headache [Unknown]
  - Cough [Unknown]
  - Malaise [Not Recovered/Not Resolved]
